FAERS Safety Report 25548669 (Version 1)
Quarter: 2025Q3

REPORT INFORMATION
  Report Type: Spontaneous
  Country: US (occurrence: None)
  Receive Date: 20250712
  Receipt Date: 20250712
  Transmission Date: 20251020
  Serious: Yes (Life-Threatening, Hospitalization, Disabling, Other)
  Sender: FDA-CTU
  Company Number: None

PATIENT
  Age: 46 Year
  Sex: Male
  Weight: 65.25 kg

DRUGS (17)
  1. REMICADE [Suspect]
     Active Substance: INFLIXIMAB
     Indication: Crohn^s disease
     Dates: start: 20221101, end: 20240406
  2. REMICADE [Suspect]
     Active Substance: INFLIXIMAB
     Indication: Inflammation
  3. STELARA [Suspect]
     Active Substance: USTEKINUMAB
     Indication: Crohn^s disease
     Dates: start: 20230501, end: 20240406
  4. STELARA [Suspect]
     Active Substance: USTEKINUMAB
     Indication: Inflammation
  5. PREDNISONE [Concomitant]
     Active Substance: PREDNISONE
  6. CELLCEPT [Concomitant]
     Active Substance: MYCOPHENOLATE MOFETIL
  7. KEPPRA [Concomitant]
     Active Substance: LEVETIRACETAM
  8. Lacosamide (Vimpat) [Concomitant]
  9. Midazolam nasal spray [Concomitant]
  10. ELIQUIS [Concomitant]
     Active Substance: APIXABAN
  11. LIPITOR [Concomitant]
     Active Substance: ATORVASTATIN CALCIUM
  12. PROTONIX [Concomitant]
     Active Substance: PANTOPRAZOLE SODIUM
  13. BACTRIM [Concomitant]
     Active Substance: SULFAMETHOXAZOLE\TRIMETHOPRIM
  14. Cyanocobalamin (Vitamin B12) [Concomitant]
  15. ERGOCALCIFEROL (VITAMIN D2) [Concomitant]
     Active Substance: ERGOCALCIFEROL
  16. TUMS [Concomitant]
     Active Substance: CALCIUM CARBONATE
  17. TRAZODONE [Concomitant]
     Active Substance: TRAZODONE HYDROCHLORIDE

REACTIONS (3)
  - Encephalitis [None]
  - Hypoaesthesia [None]
  - Seizure [None]

NARRATIVE: CASE EVENT DATE: 20240601
